FAERS Safety Report 19787720 (Version 3)
Quarter: 2022Q3

REPORT INFORMATION
  Report Type: Spontaneous
  Country: US (occurrence: US)
  Receive Date: 20210905
  Receipt Date: 20220824
  Transmission Date: 20221026
  Serious: Yes (Other)
  Sender: FDA-Public Use
  Company Number: US-MLMSERVICE-20210820-3063126-1

PATIENT
  Age: 44 Year
  Sex: Male

DRUGS (6)
  1. DEXAMETHASONE [Suspect]
     Active Substance: DEXAMETHASONE
     Indication: Angiocentric lymphoma
     Dosage: 240 MILLIGRAM (CYCLE) (40 MG/D GIVEN ON DAYS 2 TO 4 FOR 1 CYCLE)
     Route: 065
     Dates: start: 20200120, end: 20200219
  2. METHOTREXATE [Suspect]
     Active Substance: METHOTREXATE
     Indication: Angiocentric lymphoma
     Dosage: 4 GRAM PER SQUARE METRE (2 CYCLE) (2 G/ M2 GIVEN ON DAY 1 FOR 1 CYCLE)
     Route: 065
     Dates: start: 20200119, end: 20200216
  3. METHOTREXATE [Suspect]
     Active Substance: METHOTREXATE
     Indication: Prophylaxis
     Dosage: UNK (11, 14, 19, AND 21 FEB 2020)
     Dates: start: 20200211, end: 20200221
  4. ETOPOSIDE [Suspect]
     Active Substance: ETOPOSIDE
     Indication: Angiocentric lymphoma
     Dosage: 600 MILLIGRAM/SQ. METER (2 CYCLE) (100 MG/M2, ON DAYS 2 TO 4  FOR 1 CYCLE)
     Route: 065
     Dates: start: 20200120, end: 20200219
  5. IFOSFAMIDE [Suspect]
     Active Substance: IFOSFAMIDE
     Indication: Angiocentric lymphoma
     Dosage: 9000 MILLIGRAM/SQ. METER (2 CYCLE) (1500 MG/M2 ON DAYS 2 TO 4  FOR1 CYCLE)
     Route: 065
     Dates: start: 20200120, end: 20200219
  6. PEGASPARGASE [Suspect]
     Active Substance: PEGASPARGASE
     Indication: Angiocentric lymphoma
     Dosage: UNK (2 CYCLE) (2000 U/M2 GIVEN ON DAY 8  (26 JAN 2020) OF A 28-DAY CYCLE)
     Route: 065
     Dates: start: 20200126, end: 2020

REACTIONS (3)
  - Cytopenia [Unknown]
  - Renal injury [Unknown]
  - Fatigue [Unknown]

NARRATIVE: CASE EVENT DATE: 20200101
